FAERS Safety Report 8213020-6 (Version None)
Quarter: 2012Q1

REPORT INFORMATION
  Report Type: 
  Country: None (occurrence: None)
  Receive Date: 20120315
  Receipt Date: 20120312
  Transmission Date: 20120608
  Serious: No
  Sender: FDA-Public Use
  Company Number: US-BAYER-2012-024574

PATIENT
  Age: 40 Year
  Sex: Female

DRUGS (3)
  1. BEYAZ [Suspect]
     Indication: MENORRHAGIA
     Dosage: UNK
     Route: 048
     Dates: start: 20110101
  2. BEYAZ [Suspect]
     Indication: DYSMENORRHOEA
  3. LEVOTHYROXINE SODIUM [Concomitant]
     Indication: THYROID DISORDER

REACTIONS (2)
  - DYSMENORRHOEA [None]
  - MENORRHAGIA [None]
